FAERS Safety Report 9437459 (Version 2)
Quarter: 2013Q3

REPORT INFORMATION
  Report Type: Report from Study
  Country: IT (occurrence: IT)
  Receive Date: 20130802
  Receipt Date: 20130829
  Transmission Date: 20140515
  Serious: Yes (Death, Hospitalization)
  Sender: FDA-Public Use
  Company Number: IT-ELI_LILLY_AND_COMPANY-IT201306003124

PATIENT
  Age: 73 Year
  Sex: Male
  Weight: 66 kg

DRUGS (6)
  1. PEMETREXED [Suspect]
     Indication: LUNG ADENOCARCINOMA
     Dosage: 895 MG, EVERY 21 DAYS
     Route: 042
     Dates: start: 20130321, end: 20130523
  2. CARBOPLATIN [Suspect]
     Indication: LUNG ADENOCARCINOMA
     Dosage: 350 MG, EVERY 21 DAYS
     Route: 042
     Dates: start: 20130321, end: 20130523
  3. FOLIC ACID [Concomitant]
     Dosage: 1 DF, QD
  4. DOBETIN [Concomitant]
     Dosage: UNK
  5. SOLDESAM [Concomitant]
     Indication: ANTIINFLAMMATORY THERAPY
     Dosage: 44 GTT, UNK
     Route: 048
     Dates: start: 20130315
  6. OXYCONTIN [Concomitant]
     Indication: PAIN
     Dosage: 10 MG, UNK
     Route: 048
     Dates: start: 20130315

REACTIONS (2)
  - Sepsis [Fatal]
  - Pancytopenia [Fatal]
